FAERS Safety Report 16198095 (Version 1)
Quarter: 2019Q2

REPORT INFORMATION
  Report Type: Spontaneous
  Country: FR (occurrence: FR)
  Receive Date: 20190415
  Receipt Date: 20190415
  Transmission Date: 20190711
  Serious: Yes (Other)
  Sender: FDA-Public Use
  Company Number: FR-REGENERON PHARMACEUTICALS, INC.-2019-27079

PATIENT

DRUGS (7)
  1. LATANOPROST. [Concomitant]
     Active Substance: LATANOPROST
     Indication: GLAUCOMA
  2. EYLEA [Suspect]
     Active Substance: AFLIBERCEPT
     Dosage: TOTAL 4 DOSES, OD
     Dates: start: 201709
  3. EYLEA [Suspect]
     Active Substance: AFLIBERCEPT
     Indication: NEOVASCULAR AGE-RELATED MACULAR DEGENERATION
     Dosage: TOTAL 4 DOSES, OD
     Dates: start: 201706
  4. DORZOLAMIDE HCL AND TIMOLOL MALEATE [Concomitant]
     Active Substance: DORZOLAMIDE HYDROCHLORIDE\TIMOLOL MALEATE
     Indication: GLAUCOMA
  5. EYLEA [Suspect]
     Active Substance: AFLIBERCEPT
     Dosage: TOTAL 4 DOSES, OD
     Dates: start: 201707
  6. EYLEA [Suspect]
     Active Substance: AFLIBERCEPT
     Dosage: TOTAL 4 DOSES, OD
     Dates: start: 201708
  7. BRIMONIDINE [Concomitant]
     Active Substance: BRIMONIDINE TARTRATE
     Indication: GLAUCOMA

REACTIONS (2)
  - Intraocular pressure increased [Unknown]
  - Glaucoma [Unknown]
